FAERS Safety Report 10203681 (Version 1)
Quarter: 2014Q2

REPORT INFORMATION
  Report Type: Report from Study
  Country: CA (occurrence: CA)
  Receive Date: 20140529
  Receipt Date: 20140529
  Transmission Date: 20141212
  Serious: Yes (Other)
  Sender: FDA-Public Use
  Company Number: CA-JNJFOC-20140514403

PATIENT
  Age: 49 Year
  Sex: Male

DRUGS (4)
  1. REMICADE [Suspect]
     Indication: ANKYLOSING SPONDYLITIS
     Dosage: HAD RECEIVED 15 INFUSIONS
     Route: 042
     Dates: start: 20120202, end: 20140521
  2. PLAQUENIL [Concomitant]
     Route: 065
  3. METHOTREXATE [Concomitant]
     Route: 048
  4. FOLIC ACID [Concomitant]
     Route: 065

REACTIONS (1)
  - Lupus-like syndrome [Unknown]
